FAERS Safety Report 14342440 (Version 1)
Quarter: 2018Q1

REPORT INFORMATION
  Report Type: Spontaneous
  Country: US (occurrence: US)
  Receive Date: 20180102
  Receipt Date: 20180102
  Transmission Date: 20180509
  Serious: No
  Sender: FDA-Public Use
  Company Number: US-GLAXOSMITHKLINE-US2017GSK201317

PATIENT
  Age: 56 Year
  Sex: Female

DRUGS (2)
  1. PREVENTAL (DICHLOROPHEN) [Suspect]
     Active Substance: DICHLOROPHEN
     Dosage: UNK
     Dates: start: 201708
  2. VENTOLIN [Suspect]
     Active Substance: ALBUTEROL SULFATE
     Indication: DYSPNOEA
     Dosage: UNK
     Route: 055
     Dates: start: 2016

REACTIONS (3)
  - Influenza [Recovered/Resolved]
  - Wrong drug administered [Unknown]
  - Dyspnoea [Unknown]

NARRATIVE: CASE EVENT DATE: 201712
